FAERS Safety Report 5481500-2 (Version None)
Quarter: 2007Q4

REPORT INFORMATION
  Report Type: 
  Country: None (occurrence: None)
  Receive Date: 20071010
  Receipt Date: 20071003
  Transmission Date: 20080405
  Serious: Yes (Disabling)
  Sender: FDA-Public Use
  Company Number: JP-ASTRAZENECA-2007AP06325

PATIENT
  Age: 67 Year
  Sex: Female

DRUGS (4)
  1. ARIMIDEX [Suspect]
     Indication: BREAST CANCER
     Route: 048
     Dates: start: 20050701, end: 20071002
  2. HYTHIOL [Concomitant]
     Route: 048
  3. CINAL [Concomitant]
     Route: 048
  4. TAMOXIFEN CITRATE [Concomitant]
     Dates: start: 20030101, end: 20050701

REACTIONS (1)
  - DIABETES MELLITUS [None]
